FAERS Safety Report 9081702 (Version 1)
Quarter: 2013Q1

REPORT INFORMATION
  Report Type: Spontaneous
  Country: PR (occurrence: PR)
  Receive Date: 20130130
  Receipt Date: 20130130
  Transmission Date: 20140127
  Serious: No
  Sender: FDA-Public Use
  Company Number: PR-ABBOTT-12P-131-0904714-00

PATIENT
  Age: 80 None
  Sex: Female
  Weight: 64.47 kg

DRUGS (9)
  1. HUMIRA [Suspect]
     Indication: RHEUMATOID ARTHRITIS
     Route: 058
     Dates: start: 201112, end: 201202
  2. HUMIRA [Suspect]
     Route: 058
     Dates: start: 201203
  3. INSULIN [Concomitant]
     Indication: DIABETES MELLITUS
     Dosage: 57 U AM, 15 U PM
     Route: 058
  4. LISINOPRIL [Concomitant]
     Indication: HYPERTENSION
     Route: 048
  5. VERAPAMIL [Concomitant]
     Indication: HYPERTENSION
     Dosage: 240 MG 1 TABLET DAILY
     Route: 048
  6. DIURETIC [Concomitant]
     Indication: HYPERTENSION
     Dosage: 25 MG 1 TABLET DAILY
     Route: 048
  7. FOSAMAX [Concomitant]
     Indication: OSTEOPOROSIS
     Dosage: 70MG 1 TABLET ONCE A WEEK
     Route: 048
  8. TRAMADOL [Concomitant]
     Indication: PAIN
     Dosage: 50 MG 1 TABLET BID, PRN
     Route: 048
  9. VITAMIN D [Concomitant]
     Indication: SUPPLEMENTATION THERAPY
     Dosage: 50,000 UNITS 1 CAPSULE ONCE A WEEK
     Route: 048

REACTIONS (8)
  - Blister [Recovered/Resolved]
  - Skin lesion [Recovered/Resolved]
  - Nasopharyngitis [Recovered/Resolved]
  - Localised infection [Recovered/Resolved]
  - Pruritus [Recovering/Resolving]
  - Dry skin [Recovering/Resolving]
  - Dizziness [Recovered/Resolved]
  - Arthralgia [Recovering/Resolving]
